FAERS Safety Report 6237136-9 (Version None)
Quarter: 2009Q2

REPORT INFORMATION
  Report Type: 
  Country: None (occurrence: None)
  Receive Date: 20090619
  Receipt Date: 20090422
  Transmission Date: 20091009
  Serious: No
  Sender: FDA-Public Use
  Company Number: US-ASTRAZENECA-2009UW10152

PATIENT
  Age: 73 Year
  Sex: Male

DRUGS (1)
  1. SYMBICORT [Suspect]
     Dosage: 160/4.5 ONE PUFF TWO TIMES A DAY
     Route: 055

REACTIONS (1)
  - THERAPEUTIC RESPONSE UNEXPECTED [None]
